FAERS Safety Report 21124633 (Version 1)
Quarter: 2022Q3

REPORT INFORMATION
  Report Type: Spontaneous
  Country: US (occurrence: US)
  Receive Date: 20220725
  Receipt Date: 20220725
  Transmission Date: 20221027
  Serious: Yes (Other)
  Sender: FDA-Public Use
  Company Number: US-SA-SAC20220721001451

PATIENT
  Age: 58 Year
  Sex: Male

DRUGS (1)
  1. ZANTAC [Suspect]
     Active Substance: RANITIDINE HYDROCHLORIDE
     Dosage: UNK, QW (UNKNOWN AT THIS TIME FREQ- WEEKLY)
     Dates: start: 200810, end: 201010

REACTIONS (1)
  - Renal cancer stage III [Recovered/Resolved]

NARRATIVE: CASE EVENT DATE: 20090101
